FAERS Safety Report 11867000 (Version 1)
Quarter: 2015Q4

REPORT INFORMATION
  Report Type: Report from Study
  Country: JP (occurrence: JP)
  Receive Date: 20151224
  Receipt Date: 20151224
  Transmission Date: 20160305
  Serious: Yes (Death)
  Sender: FDA-Public Use
  Company Number: JP-AMGEN-JPNCT2015138159

PATIENT
  Age: 94 Year
  Sex: Female
  Weight: 39 kg

DRUGS (5)
  1. ROZEREM [Concomitant]
     Active Substance: RAMELTEON
     Indication: DELIRIUM
     Dosage: 8 MG, UNK
     Route: 048
     Dates: end: 20140822
  2. CINACALCET HCL - KHK [Suspect]
     Active Substance: CINACALCET HYDROCHLORIDE
     Indication: HYPERPARATHYROIDISM PRIMARY
     Dosage: 25 MG, QD
     Route: 048
     Dates: start: 20140808, end: 20140822
  3. PLETAAL [Concomitant]
     Active Substance: CILOSTAZOL
     Indication: SINUS NODE DYSFUNCTION
     Dosage: 200 MG, UNK
     Route: 048
     Dates: end: 20140822
  4. MEMARY [Concomitant]
     Active Substance: MEMANTINE HYDROCHLORIDE
     Indication: DEMENTIA ALZHEIMER^S TYPE
     Dosage: 20 MG, UNK
     Route: 048
     Dates: end: 20140822
  5. CEFAZOLIN SODIUM. [Concomitant]
     Active Substance: CEFAZOLIN SODIUM
     Indication: C-REACTIVE PROTEIN INCREASED
     Dosage: 1 G, UNK
     Route: 065
     Dates: start: 20140812, end: 20140816

REACTIONS (2)
  - Acute myocardial infarction [Fatal]
  - C-reactive protein increased [Not Recovered/Not Resolved]

NARRATIVE: CASE EVENT DATE: 20140811
